FAERS Safety Report 9421278 (Version 1)
Quarter: 2013Q3

REPORT INFORMATION
  Report Type: Spontaneous
  Country: US (occurrence: US)
  Receive Date: 20130725
  Receipt Date: 20130725
  Transmission Date: 20140515
  Serious: No
  Sender: FDA-Public Use
  Company Number: US-ABBOTT-12P-163-1028482-00

PATIENT
  Sex: Female
  Weight: 81.72 kg

DRUGS (5)
  1. SYNTHROID [Suspect]
     Indication: HYPOTHYROIDISM
     Dates: start: 20121211
  2. SYNTHROID [Suspect]
     Dosage: 100MCG DAILY;APPROXIMATELY + 20 YEARS
     Dates: end: 20121210
  3. MULTIVITAMIN [Concomitant]
     Indication: VITAMIN SUPPLEMENTATION
  4. VITAMIN B12 [Concomitant]
     Indication: VITAMIN SUPPLEMENTATION
  5. COD LIVER OIL [Concomitant]
     Indication: MEDICAL DIET

REACTIONS (2)
  - Oedema peripheral [Not Recovered/Not Resolved]
  - Thyroid function test abnormal [Unknown]
